FAERS Safety Report 4416523-5 (Version None)
Quarter: 2004Q3

REPORT INFORMATION
  Report Type: 
  Country: None (occurrence: None)
  Receive Date: 20040802
  Receipt Date: 20040729
  Transmission Date: 20050211
  Serious: Yes (Life-Threatening, Other)
  Sender: FDA-Public Use
  Company Number: TOS-000598

PATIENT
  Age: 59 Year
  Sex: Male
  Weight: 87 kg

DRUGS (7)
  1. TOSITUMOMAB, IODINE I 131 TOSITUMOMAB [Suspect]
     Indication: NON-HODGKIN'S LYMPHOMA
     Dosage: SEE IMAGE
     Route: 042
     Dates: start: 19990122, end: 19990122
  2. TOSITUMOMAB, IODINE I 131 TOSITUMOMAB [Suspect]
     Indication: NON-HODGKIN'S LYMPHOMA
     Dosage: SEE IMAGE
     Route: 042
     Dates: start: 19990122, end: 19990122
  3. TOSITUMOMAB, IODINE I 131 TOSITUMOMAB [Suspect]
     Indication: NON-HODGKIN'S LYMPHOMA
     Dosage: SEE IMAGE
     Route: 042
     Dates: start: 19990129, end: 19990129
  4. TOSITUMOMAB, IODINE I 131 TOSITUMOMAB [Suspect]
     Indication: NON-HODGKIN'S LYMPHOMA
     Dosage: SEE IMAGE
     Route: 042
     Dates: start: 19990129, end: 19990129
  5. TOSITUMOMAB, IODINE I 131 TOSITUMOMAB [Suspect]
  6. TOSITUMOMAB, IODINE I 131 TOSITUMOMAB [Suspect]
  7. TOSITUMOMAB, IODINE I 131 TOSITUMOMAB [Suspect]

REACTIONS (17)
  - ABDOMINAL DISCOMFORT [None]
  - DISEASE PROGRESSION [None]
  - DIZZINESS [None]
  - HAEMATURIA [None]
  - LOWER RESPIRATORY TRACT INFECTION [None]
  - LYMPHADENOPATHY [None]
  - LYMPHOPROLIFERATIVE DISORDER [None]
  - MALAISE [None]
  - MYELODYSPLASTIC SYNDROME [None]
  - NAUSEA [None]
  - NIGHT SWEATS [None]
  - PAIN [None]
  - PANCYTOPENIA [None]
  - RESPIRATORY TRACT INFECTION [None]
  - RETROPERITONEAL NEOPLASM [None]
  - SEPSIS [None]
  - THERAPY NON-RESPONDER [None]
